FAERS Safety Report 9289174 (Version 2)
Quarter: 2013Q2

REPORT INFORMATION
  Report Type: Report from Study
  Country: US (occurrence: US)
  Receive Date: 20130514
  Receipt Date: 20130604
  Transmission Date: 20140414
  Serious: Yes (Hospitalization)
  Sender: FDA-Public Use
  Company Number: US-ACTELION-A-US2013-83011

PATIENT
  Age: 72 Year
  Sex: Female

DRUGS (8)
  1. TRACLEER [Suspect]
     Indication: PULMONARY HYPERTENSION
     Dosage: UNK
     Route: 048
  2. DILTIAZEM [Concomitant]
  3. TORSEMIDE [Concomitant]
  4. METFORMIN [Concomitant]
  5. WARFARIN [Concomitant]
  6. AMITRIPTYLINE [Concomitant]
  7. PROPRANOLOL [Concomitant]
  8. SPIRONOLACTONE [Concomitant]

REACTIONS (1)
  - Atrial flutter [Unknown]
